FAERS Safety Report 23682155 (Version 1)
Quarter: 2024Q1

REPORT INFORMATION
  Report Type: Spontaneous
  Country: CN (occurrence: CN)
  Receive Date: 20240328
  Receipt Date: 20240328
  Transmission Date: 20240410
  Serious: Yes (Other)
  Sender: FDA-Public Use
  Company Number: CN-SA-SAC20240327000111

PATIENT
  Age: 49 Year
  Sex: Male
  Weight: 65 kg

DRUGS (2)
  1. ELOXATIN [Suspect]
     Active Substance: OXALIPLATIN
     Indication: Colon cancer
     Dosage: 220 MG, QD
     Route: 041
     Dates: start: 20240317, end: 20240317
  2. XELODA [Concomitant]
     Active Substance: CAPECITABINE
     Indication: Colon cancer
     Dosage: 1500 MG, BID
     Route: 048
     Dates: start: 20240317, end: 20240320

REACTIONS (5)
  - Chills [Recovering/Resolving]
  - Nausea [Recovering/Resolving]
  - Vomiting [Recovering/Resolving]
  - Diarrhoea [Recovering/Resolving]
  - Pyrexia [Recovering/Resolving]

NARRATIVE: CASE EVENT DATE: 20240317
